FAERS Safety Report 23305828 (Version 1)
Quarter: 2023Q4

REPORT INFORMATION
  Report Type: Spontaneous
  Country: GB (occurrence: GB)
  Receive Date: 20231218
  Receipt Date: 20231218
  Transmission Date: 20240110
  Serious: Yes (Life-Threatening, Hospitalization, Disabling, Other)
  Sender: FDA-Public Use
  Company Number: GB-MHRA-MED-202311251558346600-YJLCR

PATIENT
  Age: 69 Year
  Sex: Male
  Weight: 58 kg

DRUGS (2)
  1. OXALIPLATIN [Suspect]
     Active Substance: OXALIPLATIN
     Indication: Gastric cancer
     Dosage: 1000 (UNITS UNSPECIFIED)
     Route: 065
     Dates: end: 20231115
  2. CAPECITABINE [Suspect]
     Active Substance: CAPECITABINE
     Indication: Gastric cancer
     Dosage: 1000 (UNITS UNSPECIFIED)
     Route: 065
     Dates: end: 20231115

REACTIONS (2)
  - Diarrhoea [Unknown]
  - Colitis [Recovering/Resolving]

NARRATIVE: CASE EVENT DATE: 20231026
